FAERS Safety Report 5804677-5 (Version None)
Quarter: 2008Q3

REPORT INFORMATION
  Report Type: 
  Country: None (occurrence: None)
  Receive Date: 20080709
  Receipt Date: 20080630
  Transmission Date: 20090109
  Serious: Yes (Other)
  Sender: FDA-Public Use
  Company Number: US-BAYER-200819011NA

PATIENT
  Age: 47 Year
  Sex: Male
  Weight: 70 kg

DRUGS (1)
  1. AVELOX [Suspect]
     Indication: BRONCHITIS
     Dosage: TOTAL DAILY DOSE: 400 MG  UNIT DOSE: 400 MG
     Route: 048
     Dates: start: 20080229, end: 20080305

REACTIONS (15)
  - ABDOMINAL DISCOMFORT [None]
  - CRYSTAL URINE [None]
  - DIARRHOEA [None]
  - FUNGAL INFECTION [None]
  - GASTRIC INFECTION [None]
  - LOSS OF CONSCIOUSNESS [None]
  - MUSCLE SPASMS [None]
  - MUSCLE TIGHTNESS [None]
  - NEPHROLITHIASIS [None]
  - PROSTATIC PAIN [None]
  - PRURITUS GENERALISED [None]
  - RENAL PAIN [None]
  - SKIN EXFOLIATION [None]
  - SYNCOPE [None]
  - URETHRAL PAIN [None]
